FAERS Safety Report 9917112 (Version 2)
Quarter: 2014Q1

REPORT INFORMATION
  Report Type: Spontaneous
  Country: DE (occurrence: DE)
  Receive Date: 20140221
  Receipt Date: 20140221
  Transmission Date: 20141002
  Serious: Yes (Hospitalization)
  Sender: FDA-Public Use
  Company Number: DE-UCBSA-105763

PATIENT
  Age: 68 Year
  Sex: Male
  Weight: 72 kg

DRUGS (9)
  1. VIMPAT [Suspect]
     Indication: EPILEPSY
     Route: 048
     Dates: start: 20131015, end: 20131025
  2. VIMPAT [Suspect]
     Indication: EPILEPSY
     Route: 048
     Dates: start: 20131011, end: 20131014
  3. KEPPRA [Concomitant]
  4. AMLODIPIN [Concomitant]
  5. TORASEMID [Concomitant]
  6. PANTOPRAZOLE [Concomitant]
     Dosage: 1-0-0
  7. ASS 100 [Concomitant]
  8. METOHEXAL [Concomitant]
  9. ENAHEXAL [Concomitant]

REACTIONS (1)
  - Blood creatinine increased [Recovering/Resolving]
